FAERS Safety Report 19035571 (Version 1)
Quarter: 2021Q1

REPORT INFORMATION
  Report Type: Report from Study
  Country: FR (occurrence: FR)
  Receive Date: 20210320
  Receipt Date: 20210320
  Transmission Date: 20210420
  Serious: Yes (Hospitalization, Other)
  Sender: FDA-Public Use
  Company Number: FR-TAKEDA-FR201719709

PATIENT
  Sex: Male
  Weight: 49 kg

DRUGS (20)
  1. TEDUGLUTIDE [Suspect]
     Active Substance: TEDUGLUTIDE
     Indication: SHORT-BOWEL SYNDROME
     Dosage: 2.4 MG, 1X/DAY:QD
     Route: 058
     Dates: start: 20160905
  2. TEDUGLUTIDE [Suspect]
     Active Substance: TEDUGLUTIDE
     Dosage: 2.4 MG, 1X/DAY:QD
     Route: 058
     Dates: start: 20160309, end: 20160719
  3. TEDUGLUTIDE [Suspect]
     Active Substance: TEDUGLUTIDE
     Dosage: 1.2 MG, 1X/DAY:QD
     Route: 058
     Dates: start: 20160720, end: 20160802
  4. TEDUGLUTIDE [Suspect]
     Active Substance: TEDUGLUTIDE
     Dosage: 1.2 MG, 1X/DAY:QD
     Route: 058
     Dates: start: 20160720, end: 20160802
  5. TEDUGLUTIDE [Suspect]
     Active Substance: TEDUGLUTIDE
     Dosage: 2.25 MG, 1X/DAY:QD
     Route: 058
     Dates: start: 20160803, end: 20160904
  6. TEDUGLUTIDE [Suspect]
     Active Substance: TEDUGLUTIDE
     Dosage: 2.25 MG, 1X/DAY:QD
     Route: 058
     Dates: start: 20160803, end: 20160904
  7. TAUROLOCK [Concomitant]
     Active Substance: TAUROLIDINE
     Indication: VASCULAR DEVICE INFECTION
  8. TEDUGLUTIDE [Suspect]
     Active Substance: TEDUGLUTIDE
     Dosage: 2.4 MG, 1X/DAY:QD
     Route: 058
     Dates: start: 20160309, end: 20160719
  9. TEDUGLUTIDE [Suspect]
     Active Substance: TEDUGLUTIDE
     Dosage: 2.25 MG, 1X/DAY:QD
     Route: 058
     Dates: start: 20160803, end: 20160904
  10. TEDUGLUTIDE [Suspect]
     Active Substance: TEDUGLUTIDE
     Dosage: 2.25 MG, 1X/DAY:QD
     Route: 058
     Dates: start: 20160803, end: 20160904
  11. TEDUGLUTIDE [Suspect]
     Active Substance: TEDUGLUTIDE
     Dosage: 1.2 MG, 1X/DAY:QD
     Route: 058
     Dates: start: 20160720, end: 20160802
  12. THIAMINE. [Concomitant]
     Active Substance: THIAMINE
     Indication: PROPHYLAXIS
  13. TEDUGLUTIDE [Suspect]
     Active Substance: TEDUGLUTIDE
     Indication: SHORT-BOWEL SYNDROME
     Dosage: 2.4 MG, 1X/DAY:QD
     Route: 058
     Dates: start: 20160905
  14. TEDUGLUTIDE [Suspect]
     Active Substance: TEDUGLUTIDE
     Dosage: 1.2 MG, 1X/DAY:QD
     Route: 058
     Dates: start: 20160720, end: 20160802
  15. TEDUGLUTIDE [Suspect]
     Active Substance: TEDUGLUTIDE
     Indication: SHORT-BOWEL SYNDROME
     Dosage: 2.4 MG, 1X/DAY:QD
     Route: 058
     Dates: start: 20160905
  16. TEDUGLUTIDE [Suspect]
     Active Substance: TEDUGLUTIDE
     Dosage: 2.4 MG, 1X/DAY:QD
     Route: 058
     Dates: start: 20160309, end: 20160719
  17. TEDUGLUTIDE [Suspect]
     Active Substance: TEDUGLUTIDE
     Indication: SHORT-BOWEL SYNDROME
     Dosage: 2.4 MG, 1X/DAY:QD
     Route: 058
     Dates: start: 20160905
  18. TEDUGLUTIDE [Suspect]
     Active Substance: TEDUGLUTIDE
     Dosage: 2.4 MG, 1X/DAY:QD
     Route: 058
     Dates: start: 20160309, end: 20160719
  19. ZYMAD [Concomitant]
     Active Substance: CHOLECALCIFEROL
     Indication: VITAMIN D DEFICIENCY
  20. CHLORAL HYDRATE [Concomitant]
     Active Substance: CHLORAL HYDRATE
     Indication: PROPHYLAXIS

REACTIONS (1)
  - Vascular device infection [Recovered/Resolved]

NARRATIVE: CASE EVENT DATE: 20170816
